FAERS Safety Report 24237113 (Version 12)
Quarter: 2025Q2

REPORT INFORMATION
  Report Type: Report from Study
  Country: CA (occurrence: CA)
  Receive Date: 20240822
  Receipt Date: 20250616
  Transmission Date: 20250716
  Serious: Yes (Hospitalization, Other)
  Sender: AMGEN
  Company Number: CA-AMGEN-CANSL2024149893

PATIENT
  Age: 28 Year
  Sex: Male

DRUGS (19)
  1. AVSOLA [Suspect]
     Active Substance: INFLIXIMAB-AXXQ
     Indication: Crohn^s disease
     Dosage: 400 MILLIGRAM, Q4WK
     Route: 065
     Dates: start: 20220318
  2. AVSOLA [Suspect]
     Active Substance: INFLIXIMAB-AXXQ
     Dosage: 400 MILLIGRAM, Q4WK
     Route: 065
  3. AVSOLA [Suspect]
     Active Substance: INFLIXIMAB-AXXQ
     Dosage: 400 MILLIGRAM, Q4WK
     Route: 065
  4. AVSOLA [Suspect]
     Active Substance: INFLIXIMAB-AXXQ
     Dosage: 400 MILLIGRAM, Q4WK
     Route: 065
  5. AVSOLA [Suspect]
     Active Substance: INFLIXIMAB-AXXQ
     Dosage: 400 MILLIGRAM, Q4WK
     Route: 065
  6. ARANESP [Suspect]
     Active Substance: DARBEPOETIN ALFA
     Indication: IgA nephropathy
     Route: 065
  7. ARANESP [Suspect]
     Active Substance: DARBEPOETIN ALFA
     Indication: Anaemia
  8. AMLODIPINE [Concomitant]
     Active Substance: AMLODIPINE BESYLATE
  9. FUROSEMIDE [Concomitant]
     Active Substance: FUROSEMIDE
  10. PANTOPRAZOLE [Concomitant]
     Active Substance: PANTOPRAZOLE
  11. IRBESARTAN [Concomitant]
     Active Substance: IRBESARTAN
  12. SERTRALINE [Concomitant]
     Active Substance: SERTRALINE HYDROCHLORIDE
  13. IRON [Concomitant]
     Active Substance: IRON
     Route: 065
  14. REMICADE [Concomitant]
     Active Substance: INFLIXIMAB
  15. CALCIUM [Concomitant]
     Active Substance: CALCIUM
  16. QUETIAPINE [Concomitant]
     Active Substance: QUETIAPINE
  17. PRAMIPEXOLE [Concomitant]
     Active Substance: PRAMIPEXOLE
  18. BISOPROLOL [Concomitant]
     Active Substance: BISOPROLOL
     Indication: Product used for unknown indication
  19. BISOPROLOL [Concomitant]
     Active Substance: BISOPROLOL
     Route: 065

REACTIONS (19)
  - Gastrointestinal vascular malformation haemorrhagic [Unknown]
  - Renal failure [Unknown]
  - Immunosuppression [Unknown]
  - Arteriovenous fistula thrombosis [Unknown]
  - Abscess limb [Unknown]
  - Inappropriate schedule of product administration [Unknown]
  - Anaemia [Unknown]
  - Abdominal pain upper [Unknown]
  - Faeces soft [Unknown]
  - Wound complication [Unknown]
  - Swelling [Unknown]
  - Lymphadenopathy [Unknown]
  - Blood test abnormal [Unknown]
  - Restless legs syndrome [Unknown]
  - Blood pressure abnormal [Unknown]
  - Weight abnormal [Unknown]
  - Abdominal distension [Unknown]
  - Weight increased [Unknown]
  - Peripheral swelling [Unknown]

NARRATIVE: CASE EVENT DATE: 20220318
